FAERS Safety Report 22343045 (Version 1)
Quarter: 2023Q2

REPORT INFORMATION
  Report Type: Spontaneous
  Country: IT (occurrence: IT)
  Receive Date: 20230519
  Receipt Date: 20230519
  Transmission Date: 20230721
  Serious: Yes (Other)
  Sender: FDA-Public Use
  Company Number: IT-MERCK-0408USA01669

PATIENT

DRUGS (2)
  1. COSMEGEN [Suspect]
     Active Substance: DACTINOMYCIN
     Indication: Renal mass
     Route: 065
  2. VINCRISTINE SULFATE [Concomitant]
     Active Substance: VINCRISTINE SULFATE
     Indication: Renal mass
     Route: 065

REACTIONS (2)
  - Tumour necrosis [Recovered/Resolved]
  - Nephroblastoma [Recovered/Resolved]
